FAERS Safety Report 10080271 (Version 1)
Quarter: 2014Q2

REPORT INFORMATION
  Report Type: Spontaneous
  Country: JP (occurrence: JP)
  Receive Date: 20140415
  Receipt Date: 20140415
  Transmission Date: 20141212
  Serious: Yes (Other)
  Sender: FDA-Public Use
  Company Number: PHHY2014JP043702

PATIENT
  Age: 15 Year
  Sex: Male

DRUGS (14)
  1. BLEOMYCIN SULPHATE [Concomitant]
     Indication: EXTRAGONADAL PRIMARY GERM CELL TUMOUR
     Dosage: 15 MG/M2, UNK
  2. ETOPOSIDE [Concomitant]
     Indication: EXTRAGONADAL PRIMARY GERM CELL TUMOUR
     Dosage: 100 MG/M2, UNK
  3. ETOPOSIDE [Concomitant]
     Indication: YOLK SAC TUMOUR SITE UNSPECIFIED
     Dosage: 100 MG/M2, UNK
  4. ETOPOSIDE [Concomitant]
     Indication: METASTASES TO LUNG
     Dosage: 400 MG/M2, UNK
  5. IFOSFAMIDE [Concomitant]
     Indication: YOLK SAC TUMOUR SITE UNSPECIFIED
     Dosage: 1.5 G/M2
  6. IFOSFAMIDE [Concomitant]
     Indication: EXTRAGONADAL PRIMARY GERM CELL TUMOUR
     Dosage: 1.2 G/M2
  7. IFOSFAMIDE [Concomitant]
     Indication: METASTASES TO LUNG
     Dosage: 2 G/M2
  8. PACLITAXEL [Concomitant]
     Indication: YOLK SAC TUMOUR SITE UNSPECIFIED
  9. PACLITAXEL [Concomitant]
     Indication: METASTASES TO LUNG
  10. CARBOPLATIN [Suspect]
     Indication: EXTRAGONADAL PRIMARY GERM CELL TUMOUR
     Dosage: 600 MG/M2, UNK
  11. CARBOPLATIN [Suspect]
     Indication: YOLK SAC TUMOUR SITE UNSPECIFIED
     Dosage: 7 AUC
  12. CARBOPLATIN [Suspect]
     Indication: METASTASES TO LUNG
  13. CISPLATIN [Suspect]
     Indication: EXTRAGONADAL PRIMARY GERM CELL TUMOUR
     Dosage: 20 MG/M2, UNK
  14. CISPLATIN [Suspect]
     Indication: YOLK SAC TUMOUR SITE UNSPECIFIED
     Dosage: 20 MG/M2, UNK

REACTIONS (2)
  - Renal impairment [Unknown]
  - Hearing impaired [Unknown]
